FAERS Safety Report 9306257 (Version 2)
Quarter: 2013Q3

REPORT INFORMATION
  Report Type: Spontaneous
  Country: IT (occurrence: IT)
  Receive Date: 20130523
  Receipt Date: 20130711
  Transmission Date: 20140515
  Serious: Yes (Hospitalization)
  Sender: FDA-Public Use
  Company Number: IT-PFIZER INC-2013158874

PATIENT
  Age: 6 Year
  Sex: Female

DRUGS (1)
  1. XANAX [Suspect]
     Dosage: 11 GTT, TOTAL
     Route: 048
     Dates: start: 20121215, end: 20121215

REACTIONS (3)
  - Accidental exposure to product by child [Recovered/Resolved]
  - Nausea [Recovered/Resolved]
  - Somnolence [Recovered/Resolved]
